FAERS Safety Report 5190320-8 (Version None)
Quarter: 2006Q4

REPORT INFORMATION
  Report Type: 
  Country: None (occurrence: None)
  Receive Date: 20061222
  Receipt Date: 20060705
  Transmission Date: 20070319
  Serious: No
  Sender: FDA-Public Use
  Company Number: US-AMGEN-KDL185045

PATIENT
  Sex: Male

DRUGS (10)
  1. ARANESP [Suspect]
     Indication: RENAL FAILURE CHRONIC
  2. DIGOXIN [Concomitant]
  3. ALLOPURINOL [Concomitant]
  4. IRON PREPARATIONS [Concomitant]
  5. DILTIAZEM HCL [Concomitant]
  6. PROTONIX [Concomitant]
  7. SYNTHROID [Concomitant]
  8. ANAGRELIDE [Concomitant]
  9. TORSEMIDE [Concomitant]
  10. PROCRIT [Concomitant]

REACTIONS (5)
  - BLOOD PRESSURE INCREASED [None]
  - FURUNCLE [None]
  - HAEMOGLOBIN DECREASED [None]
  - RASH [None]
  - SKIN EXFOLIATION [None]
